FAERS Safety Report 12846993 (Version 3)
Quarter: 2017Q3

REPORT INFORMATION
  Report Type: Report from Study
  Country: BR (occurrence: BR)
  Receive Date: 20161014
  Receipt Date: 20170704
  Transmission Date: 20171127
  Serious: Yes (Other)
  Sender: FDA-Public Use
  Company Number: PHHY2016BR141566

PATIENT
  Sex: Female
  Weight: 58 kg

DRUGS (1)
  1. ACLASTA [Suspect]
     Active Substance: ZOLEDRONIC ACID
     Indication: OSTEOPOROSIS
     Dosage: 1 DF, Q12MO
     Route: 042
     Dates: start: 2014

REACTIONS (8)
  - Lower limb fracture [Unknown]
  - Drug ineffective [Unknown]
  - Fracture [Unknown]
  - Pathological fracture [Unknown]
  - Anxiety [Unknown]
  - Foot fracture [Unknown]
  - Fear [Unknown]
  - Spinal fracture [Unknown]

NARRATIVE: CASE EVENT DATE: 2016
